FAERS Safety Report 23510061 (Version 1)
Quarter: 2024Q1

REPORT INFORMATION
  Report Type: Spontaneous
  Country: US (occurrence: US)
  Receive Date: 20240211
  Receipt Date: 20240211
  Transmission Date: 20240410
  Serious: Yes (Other)
  Sender: FDA-Public Use
  Company Number: US-SA-SAC20240209000064

PATIENT
  Sex: Female

DRUGS (1)
  1. KEVZARA [Suspect]
     Active Substance: SARILUMAB
     Indication: Polymyalgia rheumatica
     Dosage: 200 MG, QOW
     Route: 058
     Dates: start: 20230711

REACTIONS (3)
  - Polymyalgia rheumatica [Not Recovered/Not Resolved]
  - Pain [Not Recovered/Not Resolved]
  - Loss of personal independence in daily activities [Unknown]

NARRATIVE: CASE EVENT DATE: 20240101
